FAERS Safety Report 6569105-3 (Version None)
Quarter: 2010Q1

REPORT INFORMATION
  Report Type: 
  Country: None (occurrence: None)
  Receive Date: 20100203
  Receipt Date: 20100129
  Transmission Date: 20100710
  Serious: Yes (Death)
  Sender: FDA-Public Use
  Company Number: US-GILEAD-2010-0026814

PATIENT
  Sex: Male

DRUGS (26)
  1. LETAIRIS [Suspect]
     Indication: PULMONARY ARTERIAL HYPERTENSION
     Route: 048
     Dates: start: 20091015
  2. ISOSORBIDE DINITRATE [Concomitant]
  3. SINGULAIR [Concomitant]
  4. ASMANEX TWISTHALER [Concomitant]
  5. CHONDROITIN [Concomitant]
  6. CALCIUM [Concomitant]
  7. ILETIN PORK NPH [Concomitant]
  8. NIASPAN [Concomitant]
  9. FUROSEMIDE [Concomitant]
  10. ATENOLOL [Concomitant]
  11. ALBUTEROL [Concomitant]
  12. ZOLPIDEM [Concomitant]
  13. FLUTICASONE PROPIONATE [Concomitant]
  14. IPRATROPIUM [Concomitant]
  15. CLARITIN [Concomitant]
  16. METFORMIN [Concomitant]
  17. LISINOPRIL [Concomitant]
  18. FINASTERIDE [Concomitant]
  19. SIMVASTATIN [Concomitant]
  20. OXYCODONE HCL [Concomitant]
  21. GABAPENTIN [Concomitant]
  22. DOCUSATE SODIUM [Concomitant]
  23. NITROGLYCERIN [Concomitant]
  24. MORPHINE [Concomitant]
  25. BISACODYL [Concomitant]
  26. OMEPRAZOLE [Concomitant]

REACTIONS (1)
  - DEATH [None]
